FAERS Safety Report 9503376 (Version 1)
Quarter: 2013Q3

REPORT INFORMATION
  Report Type: Spontaneous
  Country: US (occurrence: US)
  Receive Date: 20130906
  Receipt Date: 20130906
  Transmission Date: 20140515
  Serious: Yes (Hospitalization)
  Sender: FDA-Public Use
  Company Number: US-BAYER-2013-105757

PATIENT
  Age: 23 Year
  Sex: Female

DRUGS (1)
  1. MIRENA [Suspect]
     Dosage: 20 MCG/24HR, CONT
     Route: 015
     Dates: start: 20071114, end: 20110508

REACTIONS (10)
  - Device dislocation [None]
  - Ruptured ectopic pregnancy [None]
  - Ectopic pregnancy with contraceptive device [Recovered/Resolved]
  - Haemoglobin decreased [None]
  - Genital haemorrhage [None]
  - Drug ineffective [None]
  - Infection [None]
  - Abdominal pain [None]
  - Injury [None]
  - Medical device pain [None]
